FAERS Safety Report 6415257-5 (Version None)
Quarter: 2009Q4

REPORT INFORMATION
  Report Type: 
  Country: None (occurrence: None)
  Receive Date: 20091022
  Receipt Date: 20091014
  Transmission Date: 20100525
  Serious: Yes (Other)
  Sender: FDA-Public Use
  Company Number: 2009SP016430

PATIENT
  Age: 60 Year
  Sex: Female
  Weight: 70 kg

DRUGS (11)
  1. TEMODAL [Suspect]
     Indication: BREAST CANCER
     Dosage: 120 MG; 360 MG; 360 MG
     Dates: start: 20090512, end: 20090518
  2. TEMODAL [Suspect]
     Indication: BREAST CANCER
     Dosage: 120 MG; 360 MG; 360 MG
     Dates: start: 20090618, end: 20090622
  3. TEMODAL [Suspect]
     Indication: BREAST CANCER
     Dosage: 120 MG; 360 MG; 360 MG
     Dates: start: 20090801, end: 20090805
  4. NEUPOGEN [Concomitant]
  5. CLONAZEPAM [Concomitant]
  6. OMEPRAZOLE [Concomitant]
  7. DEXTROPROPOXIFENO [Concomitant]
  8. IMIPRAMINE [Concomitant]
  9. BUPRENOPHINE [Concomitant]
  10. TAXOL [Concomitant]
  11. CARBOPLATIN [Concomitant]

REACTIONS (10)
  - ASTHENIA [None]
  - BREAST CANCER METASTATIC [None]
  - CONVULSION [None]
  - HAEMATOTOXICITY [None]
  - HALLUCINATION [None]
  - HEADACHE [None]
  - METASTASES TO CENTRAL NERVOUS SYSTEM [None]
  - NAUSEA [None]
  - PANCYTOPENIA [None]
  - PARAESTHESIA [None]
